FAERS Safety Report 22070649 (Version 1)
Quarter: 2023Q1

REPORT INFORMATION
  Report Type: Spontaneous
  Country: US (occurrence: None)
  Receive Date: 20230307
  Receipt Date: 20230307
  Transmission Date: 20230417
  Serious: Yes (Disabling, Other)
  Sender: FDA-Public Use
  Company Number: None

PATIENT
  Age: 53 Year
  Sex: Female
  Weight: 66.6 kg

DRUGS (12)
  1. RISEDRONATE SODIUM [Suspect]
     Active Substance: RISEDRONATE SODIUM
     Indication: Osteopenia
     Dosage: OTHER QUANTITY : 1 TABLET(S);?OTHER FREQUENCY : ONE A WEEK;?
     Route: 048
     Dates: start: 20230212, end: 20230219
  2. NOVOLOG [Concomitant]
     Active Substance: INSULIN ASPART
  3. Dexcom G6 [Concomitant]
  4. Omnipod [Concomitant]
  5. LOSARTAN [Concomitant]
     Active Substance: LOSARTAN
  6. MOTEGRITY [Concomitant]
     Active Substance: PRUCALOPRIDE SUCCINATE
  7. LEFLUNOMIDE [Concomitant]
     Active Substance: LEFLUNOMIDE
  8. VITAMIN B COMPLEX [Concomitant]
     Active Substance: CYANOCOBALAMIN\DEXPANTHENOL\NIACINAMIDE\PYRIDOXINE HYDROCHLORIDE\RIBOFLAVIN 5^-PHOSPHATE SODIUM\THIA
  9. MAGNESIUM [Concomitant]
     Active Substance: MAGNESIUM
  10. vitamin D3.+ calcium [Concomitant]
  11. HERBALS\TURMERIC [Concomitant]
     Active Substance: HERBALS\TURMERIC
  12. COLLAGEN [Concomitant]
     Active Substance: COLLAGEN

REACTIONS (8)
  - Pain [None]
  - Chest pain [None]
  - Nausea [None]
  - Vomiting [None]
  - Odynophagia [None]
  - Eye haemorrhage [None]
  - Visual impairment [None]
  - Impaired work ability [None]

NARRATIVE: CASE EVENT DATE: 20230212
